FAERS Safety Report 15109536 (Version 1)
Quarter: 2018Q3

REPORT INFORMATION
  Report Type: Spontaneous
  Country: DE (occurrence: DE)
  Receive Date: 20180705
  Receipt Date: 20180705
  Transmission Date: 20181010
  Serious: Yes (Death, Hospitalization)
  Sender: FDA-Public Use
  Company Number: DE-SHENZHEN TECHDOW PHARMACEUTICAL CO. LTD-DE-2018TEC0000024

PATIENT

DRUGS (1)
  1. HEPARIN SODIUM INJECTION USP, PRESERVATIVE FREE [Suspect]
     Active Substance: HEPARIN SODIUM
     Indication: ANTICOAGULANT THERAPY
     Dosage: UNK

REACTIONS (1)
  - Intra-abdominal haemorrhage [Fatal]
